FAERS Safety Report 9714111 (Version 3)
Quarter: 2015Q3

REPORT INFORMATION
  Report Type: Spontaneous
  Country: US (occurrence: US)
  Receive Date: 20131126
  Receipt Date: 20150803
  Transmission Date: 20151125
  Serious: No
  Sender: FDA-Public Use
  Company Number: US-GILEAD-2008-0018205

PATIENT
  Age: 79 Year
  Sex: Female
  Weight: 77.11 kg

DRUGS (12)
  1. LETAIRIS [Suspect]
     Active Substance: AMBRISENTAN
     Indication: PULMONARY HYPERTENSION
     Route: 048
     Dates: end: 20081027
  2. ATENOLOL. [Concomitant]
     Active Substance: ATENOLOL
  3. ZETIA [Concomitant]
     Active Substance: EZETIMIBE
  4. ZOLOFT [Concomitant]
     Active Substance: SERTRALINE HYDROCHLORIDE
  5. PRILOSEC [Concomitant]
     Active Substance: OMEPRAZOLE MAGNESIUM
  6. ADALAT CC [Concomitant]
     Active Substance: NIFEDIPINE
  7. TRICOR [Concomitant]
     Active Substance: FENOFIBRATE
  8. LETAIRIS [Suspect]
     Active Substance: AMBRISENTAN
     Route: 048
     Dates: start: 20080829
  9. LETAIRIS [Suspect]
     Active Substance: AMBRISENTAN
     Route: 048
  10. INDAPAMIDE. [Concomitant]
     Active Substance: INDAPAMIDE
  11. LEVOTHYROXIN [Concomitant]
     Active Substance: LEVOTHYROXINE
  12. LISINOPRIL. [Concomitant]
     Active Substance: LISINOPRIL

REACTIONS (4)
  - Oedema [Not Recovered/Not Resolved]
  - Pneumonia [None]
  - Peripheral swelling [Not Recovered/Not Resolved]
  - Arthralgia [None]

NARRATIVE: CASE EVENT DATE: 20080905
